FAERS Safety Report 21069743 (Version 2)
Quarter: 2024Q3

REPORT INFORMATION
  Report Type: Spontaneous
  Country: US (occurrence: US)
  Receive Date: 20220712
  Receipt Date: 20240722
  Transmission Date: 20241017
  Serious: No
  Sender: ASTELLAS
  Company Number: US-ASTELLAS-2021US032703

PATIENT
  Age: 72 Year
  Sex: Female

DRUGS (1)
  1. MYRBETRIQ [Suspect]
     Active Substance: MIRABEGRON
     Indication: Product used for unknown indication
     Route: 065
     Dates: start: 202108

REACTIONS (3)
  - Insomnia [Unknown]
  - Urinary incontinence [Recovering/Resolving]
  - Urge incontinence [Recovering/Resolving]

NARRATIVE: CASE EVENT DATE: 20210801
